FAERS Safety Report 7105884-4 (Version None)
Quarter: 2010Q4

REPORT INFORMATION
  Report Type: 
  Country: None (occurrence: None)
  Receive Date: 20101116
  Receipt Date: 20101112
  Transmission Date: 20110411
  Serious: Yes (Other)
  Sender: FDA-Public Use
  Company Number: A0892232A

PATIENT
  Sex: Male

DRUGS (1)
  1. SORIATANE [Suspect]
     Indication: SQUAMOUS CELL CARCINOMA
     Dosage: 25MG PER DAY
     Route: 048

REACTIONS (3)
  - DRY SKIN [None]
  - RHINORRHOEA [None]
  - SQUAMOUS CELL CARCINOMA [None]
